FAERS Safety Report 5101496-2 (Version None)
Quarter: 2006Q3

REPORT INFORMATION
  Report Type: 
  Country: None (occurrence: None)
  Receive Date: 20060911
  Receipt Date: 20060904
  Transmission Date: 20061208
  Serious: Yes (Other)
  Sender: FDA-Public Use
  Company Number: 2006UW17475

PATIENT
  Sex: Female

DRUGS (1)
  1. CEFOTAN [Suspect]
     Dates: start: 20030101

REACTIONS (4)
  - ANAEMIA HAEMOLYTIC AUTOIMMUNE [None]
  - FIBROMYALGIA [None]
  - RENAL FAILURE [None]
  - THROMBOCYTOPENIA [None]
